FAERS Safety Report 7811293-2 (Version None)
Quarter: 2011Q4

REPORT INFORMATION
  Report Type: 
  Country: None (occurrence: None)
  Receive Date: 20111013
  Receipt Date: 20111004
  Transmission Date: 20120403
  Serious: Yes (Other)
  Sender: FDA-Public Use
  Company Number: IT-ASTRAZENECA-2011SE59162

PATIENT

DRUGS (3)
  1. CYCLOPHOSPHAMIDE [Suspect]
     Indication: BREAST CANCER
     Route: 048
  2. FULVESTRANT [Suspect]
     Indication: BREAST CANCER
     Route: 030
  3. METHOTREXATE [Suspect]
     Indication: BREAST CANCER
     Route: 048

REACTIONS (2)
  - STOMATITIS [None]
  - RASH PUSTULAR [None]
